FAERS Safety Report 14397711 (Version 1)
Quarter: 2018Q1

REPORT INFORMATION
  Report Type: Spontaneous
  Country: US (occurrence: US)
  Receive Date: 20180116
  Receipt Date: 20180116
  Transmission Date: 20180509
  Serious: No
  Sender: FDA-Public Use
  Company Number: US-ALLERGAN-1764527US

PATIENT
  Age: 85 Year
  Sex: Female

DRUGS (5)
  1. ASPIRIN. [Concomitant]
     Active Substance: ASPIRIN
     Indication: PRODUCT USED FOR UNKNOWN INDICATION
     Dosage: 325 MG, UNK
  2. PROPRANOLOL [Concomitant]
     Active Substance: PROPRANOLOL HYDROCHLORIDE
     Indication: TREMOR
  3. PREDNISONE. [Concomitant]
     Active Substance: PREDNISONE
     Indication: TEMPORAL ARTERITIS
  4. PROPRANOLOL [Concomitant]
     Active Substance: PROPRANOLOL HYDROCHLORIDE
     Indication: HYPERTENSION
  5. BOTOX [Suspect]
     Active Substance: ONABOTULINUMTOXINA
     Indication: INCONTINENCE
     Dosage: UNK, SINGLE, 1 TREATMENT
     Route: 043
     Dates: start: 201709

REACTIONS (3)
  - Pain [Unknown]
  - Urinary retention [Unknown]
  - Drug ineffective [Unknown]

NARRATIVE: CASE EVENT DATE: 201709
